FAERS Safety Report 9169405 (Version 1)
Quarter: 2013Q1

REPORT INFORMATION
  Report Type: Spontaneous
  Country: CA (occurrence: CA)
  Receive Date: 20130318
  Receipt Date: 20130318
  Transmission Date: 20140127
  Serious: Yes (Other)
  Sender: FDA-Public Use
  Company Number: CA-PFIZER INC-2013086116

PATIENT
  Sex: Male

DRUGS (2)
  1. PRISTIQ [Suspect]
  2. CYMBALTA [Suspect]

REACTIONS (3)
  - Cerebral cyst [Not Recovered/Not Resolved]
  - Convulsion [Unknown]
  - Lichen planus [Unknown]
